FAERS Safety Report 5013686-8 (Version None)
Quarter: 2006Q2

REPORT INFORMATION
  Report Type: 
  Country: None (occurrence: None)
  Receive Date: 20060525
  Receipt Date: 20060518
  Transmission Date: 20061013
  Serious: Yes (Death)
  Sender: FDA-Public Use
  Company Number: 163-21880-06030577

PATIENT
  Age: 72 Year
  Sex: Male

DRUGS (12)
  1. REVLIMID [Suspect]
     Indication: MYELODYSPLASTIC SYNDROME
     Dosage: 10 MG, DAILY; ORAL
     Route: 048
     Dates: start: 20060203, end: 20060401
  2. PROTONIX [Concomitant]
  3. ATENOLOL [Concomitant]
  4. IMDUR [Concomitant]
  5. ACCUPRIL [Concomitant]
  6. NORVASC [Concomitant]
  7. ZOCOR [Concomitant]
  8. AVELOX [Concomitant]
  9. FLOMAX [Concomitant]
  10. LASIX [Concomitant]
  11. ASPIRIN [Concomitant]
  12. FOLIC ACID [Concomitant]

REACTIONS (5)
  - CARDIAC ARREST [None]
  - CARDIAC VALVE DISEASE [None]
  - DYSPNOEA [None]
  - FULL BLOOD COUNT DECREASED [None]
  - OEDEMA PERIPHERAL [None]
